FAERS Safety Report 4456153-2 (Version None)
Quarter: 2004Q3

REPORT INFORMATION
  Report Type: 
  Country: None (occurrence: None)
  Receive Date: 20040920
  Receipt Date: 20040915
  Transmission Date: 20050211
  Serious: Yes (Other)
  Sender: FDA-Public Use
  Company Number: 2004-09-0283

PATIENT
  Age: 50 Year
  Sex: Female

DRUGS (2)
  1. INTRON A [Suspect]
     Indication: HEPATITIS C
  2. INTRON A [Suspect]

REACTIONS (5)
  - FLUSHING [None]
  - INJECTION SITE INDURATION [None]
  - LYMPHOCYTIC INFILTRATION [None]
  - PYREXIA [None]
  - SKIN DISORDER [None]
